FAERS Safety Report 5605984-1 (Version None)
Quarter: 2008Q1

REPORT INFORMATION
  Report Type: 
  Country: None (occurrence: None)
  Receive Date: 20080129
  Receipt Date: 20071008
  Transmission Date: 20080703
  Serious: No
  Sender: FDA-Public Use
  Company Number: US-AMGEN-US246786

PATIENT
  Sex: Male

DRUGS (4)
  1. VECTIBIX [Suspect]
     Indication: COLORECTAL CANCER
     Route: 065
     Dates: start: 20070927
  2. IRINOTECAN [Concomitant]
     Route: 065
     Dates: start: 20070927
  3. COMPAZINE [Concomitant]
     Route: 065
  4. BENADRYL [Concomitant]
     Route: 065

REACTIONS (1)
  - RASH [None]
